FAERS Safety Report 10142061 (Version 1)
Quarter: 2014Q2

REPORT INFORMATION
  Report Type: Report from Study
  Country: FR (occurrence: FR)
  Receive Date: 20140429
  Receipt Date: 20140429
  Transmission Date: 20141212
  Serious: Yes (Other)
  Sender: FDA-Public Use
  Company Number: FR-ABBVIE-14P-056-1228104-00

PATIENT
  Age: 55 Year
  Sex: Female

DRUGS (1)
  1. HUMIRA [Suspect]
     Indication: PSORIATIC ARTHROPATHY
     Route: 058
     Dates: start: 2011, end: 201402

REACTIONS (7)
  - Diabetes mellitus [Unknown]
  - Nausea [Unknown]
  - Migraine [Unknown]
  - Dry mouth [Unknown]
  - Skin exfoliation [Recovered/Resolved]
  - Hypertension [Unknown]
  - Tachycardia [Unknown]
